FAERS Safety Report 5949545-3 (Version None)
Quarter: 2008Q4

REPORT INFORMATION
  Report Type: 
  Country: None (occurrence: None)
  Receive Date: 20081021
  Receipt Date: 20080829
  Transmission Date: 20090506
  Serious: Yes (Hospitalization, Other)
  Sender: FDA-Public Use
  Company Number: HQWYE816704AUG04

PATIENT
  Age: 57 Year
  Sex: Female

DRUGS (4)
  1. PREMARIN [Suspect]
     Indication: MENOPAUSE
     Dates: start: 19880101, end: 19940101
  2. ESTRATEST [Suspect]
     Dates: start: 19940101, end: 19960101
  3. PREMPRO [Suspect]
  4. PROVERA [Suspect]

REACTIONS (1)
  - BREAST CANCER [None]
